FAERS Safety Report 10142234 (Version 1)
Quarter: 2014Q2

REPORT INFORMATION
  Report Type: Report from Study
  Country: NL (occurrence: NL)
  Receive Date: 20140429
  Receipt Date: 20140429
  Transmission Date: 20141212
  Serious: Yes (Death, Hospitalization)
  Sender: FDA-Public Use
  Company Number: NL-ROCHE-1388964

PATIENT
  Age: 74 Year
  Sex: Female
  Weight: 53.6 kg

DRUGS (6)
  1. BEVACIZUMAB [Suspect]
     Indication: GASTRIC CANCER
     Dosage: MOST RECENT DOSE PRIOR TO ADMINISTRATION: 28/MAR/2014
     Route: 042
     Dates: start: 20140307
  2. CAPECITABINE [Suspect]
     Indication: GASTRIC CANCER
     Dosage: DAY 1-14, MOST RECENT DOSE PRIOR TO ADMINISTRATION: 28/MAR/2014
     Route: 048
     Dates: start: 20140307
  3. DOCETAXEL [Suspect]
     Indication: GASTRIC CANCER
     Dosage: MOST RECENT DOSE PRIOR TO ADMINISTRATION: 28/MAR/2014
     Route: 042
     Dates: start: 20140307
  4. OXALIPLATIN [Suspect]
     Indication: GASTRIC CANCER
     Dosage: MOST RECENT DOSE PRIOR TO ADMINISTRATION: 28/MAR/2014
     Route: 042
     Dates: start: 20140307
  5. FERROUS FUMARATE [Concomitant]
     Route: 065
     Dates: start: 20140307
  6. ALFUZOSIN [Concomitant]
     Route: 065
     Dates: start: 20140219

REACTIONS (2)
  - Gastric perforation [Fatal]
  - Gastric haemorrhage [Not Recovered/Not Resolved]
